FAERS Safety Report 20762471 (Version 1)
Quarter: 2022Q2

REPORT INFORMATION
  Report Type: Spontaneous
  Country: US (occurrence: US)
  Receive Date: 20220428
  Receipt Date: 20220428
  Transmission Date: 20220720
  Serious: No
  Sender: FDA-Public Use
  Company Number: US-ELI_LILLY_AND_COMPANY-US202204012786

PATIENT
  Sex: Male

DRUGS (1)
  1. TALTZ [Suspect]
     Active Substance: IXEKIZUMAB
     Indication: Psoriasis
     Dosage: 80 MG, UNKNOWN
     Route: 058
     Dates: start: 202102

REACTIONS (5)
  - Diarrhoea [Unknown]
  - Irritable bowel syndrome [Unknown]
  - Injection site pain [Unknown]
  - Injection site erythema [Unknown]
  - Injection site urticaria [Unknown]
